FAERS Safety Report 5959583-2 (Version None)
Quarter: 2008Q4

REPORT INFORMATION
  Report Type: 
  Country: None (occurrence: None)
  Receive Date: 20081120
  Receipt Date: 20081114
  Transmission Date: 20090506
  Serious: Yes (Hospitalization, Other)
  Sender: FDA-Public Use
  Company Number: JP-JNJFOC-20080403479

PATIENT
  Age: 21 Year
  Sex: Male

DRUGS (5)
  1. RISPERDAL [Suspect]
     Route: 048
  2. RISPERDAL [Suspect]
     Route: 048
  3. RISPERDAL [Suspect]
     Indication: SCHIZOPHRENIA
     Route: 048
  4. AMOBAN [Concomitant]
     Route: 065
  5. SILECE [Concomitant]
     Route: 065

REACTIONS (2)
  - BRADYCARDIA [None]
  - VENTRICULAR EXTRASYSTOLES [None]
